FAERS Safety Report 8314555 (Version 4)
Quarter: 2019Q4

REPORT INFORMATION
  Report Type: Spontaneous
  Country: NL (occurrence: NL)
  Receive Date: 20111228
  Receipt Date: 20191213
  Transmission Date: 20200122
  Serious: Yes (Other)
  Sender: FDA-Public Use
  Company Number: NL-AMGEN-NLDSP2011009581

PATIENT
  Age: 52 Year
  Sex: Female
  Weight: 77 kg

DRUGS (2)
  1. ENBREL [Suspect]
     Active Substance: ETANERCEPT
     Indication: ANKYLOSING SPONDYLITIS
     Dosage: 50 MG, UNK
     Route: 058
     Dates: start: 20090518, end: 20110202
  2. CELEBREX [Concomitant]
     Active Substance: CELECOXIB
     Dosage: 100 MG, AS NEEDED
     Dates: start: 20080601

REACTIONS (4)
  - Pneumonia [Unknown]
  - Infection [Unknown]
  - Inflammation [Unknown]
  - Natural killer-cell leukaemia [Not Recovered/Not Resolved]

NARRATIVE: CASE EVENT DATE: 20110202
